FAERS Safety Report 6706777-4 (Version None)
Quarter: 2010Q2

REPORT INFORMATION
  Report Type: 
  Country: None (occurrence: None)
  Receive Date: 20100503
  Receipt Date: 20100419
  Transmission Date: 20101027
  Serious: Yes (Other)
  Sender: FDA-Public Use
  Company Number: PHEH2008US02463

PATIENT
  Sex: Male

DRUGS (23)
  1. ZOMETA [Suspect]
     Dosage: UNK
     Dates: start: 20041020, end: 20050701
  2. LEVAQUIN [Concomitant]
  3. DOXYCYCLINE [Concomitant]
  4. ISOSORBIDE [Concomitant]
  5. COREG [Concomitant]
  6. FUROSEMIDE [Concomitant]
  7. CHEMOTHERAPEUTICS NOS [Concomitant]
  8. RADIATION [Concomitant]
  9. RITUXAN [Concomitant]
  10. CYCLOPHOSPHAMIDE W/VINCRISTINE/PREDNISONE [Concomitant]
  11. MITOXANTRONE [Concomitant]
  12. ZINECARD [Concomitant]
  13. NEULASTA [Concomitant]
  14. ARANESP [Concomitant]
  15. DECADRON [Concomitant]
  16. TYLENOL-500 [Concomitant]
  17. BENADRYL ^WARNER-LAMBERT^               /USA/ [Concomitant]
  18. ATENOLOL [Concomitant]
  19. CELEBREX [Concomitant]
  20. COUMADIN [Concomitant]
  21. NIFEDIPINE [Concomitant]
  22. ZOCOR [Concomitant]
  23. NITROGLYCERIN ^PHARMACIA + UPJOHN^ [Concomitant]

REACTIONS (14)
  - ANXIETY [None]
  - CANDIDIASIS [None]
  - CEREBRAL ISCHAEMIA [None]
  - CHOLECYSTECTOMY [None]
  - DEFORMITY [None]
  - EMOTIONAL DISTRESS [None]
  - INFECTION [None]
  - NEPHROLITHIASIS [None]
  - NEUROPATHY PERIPHERAL [None]
  - OSTEONECROSIS OF JAW [None]
  - PLEURAL EFFUSION [None]
  - SPINAL OSTEOARTHRITIS [None]
  - THROMBOCYTOPENIA [None]
  - URINARY TRACT INFECTION [None]
